FAERS Safety Report 4996209-9 (Version None)
Quarter: 2006Q2

REPORT INFORMATION
  Report Type: 
  Country: None (occurrence: None)
  Receive Date: 20060504
  Receipt Date: 20060425
  Transmission Date: 20061013
  Serious: Yes (Hospitalization)
  Sender: FDA-Public Use
  Company Number: MEDI-0004495

PATIENT
  Age: 9 Month
  Sex: 0
  Weight: 6.9 kg

DRUGS (4)
  1. SYNAGIS [Suspect]
     Indication: ANTIVIRAL PROPHYLAXIS
     Dosage: 105 MG, 1 IN 30 D, INTRAMUSCULAR; 110 MG, 1 IN 1 30 D, INTRAMUSCULAR
     Route: 030
     Dates: start: 20051122, end: 20051220
  2. SYNAGIS [Suspect]
     Indication: ANTIVIRAL PROPHYLAXIS
     Dosage: 105 MG, 1 IN 30 D, INTRAMUSCULAR; 110 MG, 1 IN 1 30 D, INTRAMUSCULAR
     Route: 030
     Dates: start: 20060214, end: 20060214
  3. SYNAGIS [Suspect]
     Indication: ANTIVIRAL PROPHYLAXIS
     Dosage: 105 MG, 1 IN 30 D, INTRAMUSCULAR; 110 MG, 1 IN 1 30 D, INTRAMUSCULAR
     Route: 030
     Dates: start: 20051122
  4. SYNAGIS [Suspect]
     Indication: ANTIVIRAL PROPHYLAXIS
     Dosage: 105 MG, 1 IN 30 D, INTRAMUSCULAR; 110 MG, 1 IN 1 30 D, INTRAMUSCULAR
     Route: 030
     Dates: start: 20060117

REACTIONS (2)
  - BRONCHIOLITIS [None]
  - RESPIRATORY FAILURE [None]
